FAERS Safety Report 5511748-X (Version None)
Quarter: 2007Q4

REPORT INFORMATION
  Report Type: 
  Country: None (occurrence: None)
  Receive Date: 20071109
  Receipt Date: 20071029
  Transmission Date: 20080405
  Serious: Yes (Life-Threatening, Other)
  Sender: FDA-Public Use
  Company Number: GB-PFIZER INC-2007083888

PATIENT
  Sex: Female
  Weight: 63 kg

DRUGS (9)
  1. SERTRALINE [Suspect]
     Indication: DEPRESSION
     Dosage: DAILY DOSE:50MG
     Route: 048
  2. VITAMINS [Concomitant]
  3. ALBUTEROL [Concomitant]
     Indication: ASTHMA
     Route: 055
  4. LACTULOSE [Concomitant]
     Indication: CONSTIPATION
  5. LACTULOSE [Concomitant]
     Indication: CROHN'S DISEASE
  6. BECLOMETHASONE DIPROPIONATE [Concomitant]
     Indication: ASTHMA
     Route: 055
  7. KETOVITE [Concomitant]
     Indication: CROHN'S DISEASE
     Dosage: FREQ:DAILY
     Dates: start: 20010101, end: 20061117
  8. INFLUENZA VACCINE [Concomitant]
     Route: 030
  9. CERAZETTE [Concomitant]

REACTIONS (3)
  - ANTIPHOSPHOLIPID SYNDROME [None]
  - STILLBIRTH [None]
  - VAGINAL HAEMORRHAGE [None]
